FAERS Safety Report 24420311 (Version 2)
Quarter: 2024Q4

REPORT INFORMATION
  Report Type: Spontaneous
  Country: CN (occurrence: CN)
  Receive Date: 20241010
  Receipt Date: 20241018
  Transmission Date: 20250115
  Serious: No
  Sender: ROCHE
  Company Number: CN-BoehringerIngelheim-2024-BI-020501

PATIENT
  Age: 53 Year
  Sex: Male
  Weight: 75.0 kg

DRUGS (2)
  1. ALTEPLASE [Suspect]
     Active Substance: ALTEPLASE
     Indication: Thrombolysis
     Route: 041
     Dates: start: 20240326, end: 20240326
  2. ALTEPLASE [Suspect]
     Active Substance: ALTEPLASE
     Route: 041
     Dates: start: 20240326, end: 20240326

REACTIONS (2)
  - Tongue haemorrhage [Recovering/Resolving]
  - Tongue oedema [Recovering/Resolving]

NARRATIVE: CASE EVENT DATE: 20240326
